FAERS Safety Report 16373905 (Version 1)
Quarter: 2019Q2

REPORT INFORMATION
  Report Type: Spontaneous
  Country: US (occurrence: US)
  Receive Date: 20190530
  Receipt Date: 20190530
  Transmission Date: 20190711
  Serious: Yes (Other)
  Sender: FDA-Public Use
  Company Number: US-NOVOPROD-657032

PATIENT
  Age: 41 Year
  Sex: Male

DRUGS (4)
  1. FIASP [Suspect]
     Active Substance: INSULIN ASPART
     Dosage: UNK
     Route: 058
     Dates: start: 20190404, end: 2019
  2. FIASP [Suspect]
     Active Substance: INSULIN ASPART
     Dosage: TOOK 22 UNITS THROUGH SYRINGE
     Route: 058
     Dates: end: 20190403
  3. NOVOLOG [Concomitant]
     Active Substance: INSULIN ASPART
     Indication: BLOOD GLUCOSE INCREASED
     Dosage: UNK
     Route: 058
     Dates: start: 2019
  4. FIASP [Suspect]
     Active Substance: INSULIN ASPART
     Indication: TYPE 1 DIABETES MELLITUS
     Dosage: SLIDING SCALE (INSULIN TO CARB RATIO 1:10)
     Route: 058
     Dates: start: 201810

REACTIONS (3)
  - Wrong technique in product usage process [Unknown]
  - Diabetic ketoacidosis [Unknown]
  - Drug ineffective [Unknown]

NARRATIVE: CASE EVENT DATE: 20190402
